FAERS Safety Report 12297934 (Version 1)
Quarter: 2016Q2

REPORT INFORMATION
  Report Type: Spontaneous
  Country: US (occurrence: US)
  Receive Date: 20160422
  Receipt Date: 20160422
  Transmission Date: 20160815
  Serious: No
  Sender: FDA-Public Use
  Company Number: US-PFIZER INC-2016227023

PATIENT
  Sex: Female

DRUGS (4)
  1. PREMARIN [Suspect]
     Active Substance: ESTROGENS, CONJUGATED
  2. ACCURETIC [Suspect]
     Active Substance: HYDROCHLOROTHIAZIDE\QUINAPRIL HYDROCHLORIDE
  3. PROVERA [Suspect]
     Active Substance: MEDROXYPROGESTERONE ACETATE
  4. LYRICA [Suspect]
     Active Substance: PREGABALIN

REACTIONS (1)
  - Dizziness [Unknown]
